FAERS Safety Report 7951921-4 (Version None)
Quarter: 2011Q4

REPORT INFORMATION
  Report Type: 
  Country: None (occurrence: None)
  Receive Date: 20111201
  Receipt Date: 20111123
  Transmission Date: 20120403
  Serious: Yes (Hospitalization, Other)
  Sender: FDA-Public Use
  Company Number: FR-PFIZER INC-2011251168

PATIENT
  Age: 69 Year
  Sex: Female

DRUGS (8)
  1. METHOTREXATE [Suspect]
     Indication: T-CELL LYMPHOMA STAGE III
     Dosage: 15 MG, UNK
     Route: 037
     Dates: start: 20110706, end: 20110706
  2. HYDROCORTISONE [Suspect]
     Indication: T-CELL LYMPHOMA STAGE III
     Dosage: 25 MG, UNK
     Route: 042
     Dates: start: 20110706, end: 20110706
  3. VINCRISTINE SULFATE [Suspect]
     Indication: T-CELL LYMPHOMA STAGE III
     Dosage: 1.4 MG/M2, UNK
     Route: 042
     Dates: start: 20110706, end: 20110706
  4. MABTHERA [Suspect]
     Indication: T-CELL LYMPHOMA STAGE III
     Dosage: 375 MG/M2, UNK
     Route: 042
     Dates: start: 20110706, end: 20110706
  5. SOLU-MEDROL [Suspect]
     Indication: T-CELL LYMPHOMA STAGE III
     Dosage: 40 MG/M2, UNK
     Route: 042
     Dates: start: 20110706, end: 20110706
  6. DOXORUBICIN HCL [Suspect]
     Indication: T-CELL LYMPHOMA STAGE III
     Dosage: 50 MG/M2, UNK
     Route: 042
     Dates: start: 20110706, end: 20110706
  7. CYCLOPHOSPHAMIDE [Suspect]
     Indication: T-CELL LYMPHOMA STAGE III
     Dosage: 750 MG/M2, UNK
     Route: 042
     Dates: start: 20110706, end: 20110706
  8. PREDNISONE TAB [Suspect]
     Dosage: UNK
     Route: 048
     Dates: start: 20110707, end: 20110710

REACTIONS (5)
  - ACUTE PULMONARY OEDEMA [None]
  - CARDIOMYOPATHY [None]
  - HERPES SIMPLEX [None]
  - HYPERTENSION [None]
  - CYTOMEGALOVIRUS INFECTION [None]
